FAERS Safety Report 19665329 (Version 3)
Quarter: 2021Q3

REPORT INFORMATION
  Report Type: Report from Study
  Country: GT (occurrence: GT)
  Receive Date: 20210805
  Receipt Date: 20210921
  Transmission Date: 20211014
  Serious: Yes (Life-Threatening, Other)
  Sender: FDA-Public Use
  Company Number: NVSC2021GT176771

PATIENT
  Age: 61 Year
  Sex: Male

DRUGS (2)
  1. METFORMIN [Concomitant]
     Active Substance: METFORMIN HYDROCHLORIDE
     Indication: DIABETES MELLITUS
     Dosage: 855 MG, (AT NIGHT) (15 YEARS AGO)
     Route: 065
  2. EXFORGE HCT [Suspect]
     Active Substance: AMLODIPINE BESYLATE\HYDROCHLOROTHIAZIDE\VALSARTAN
     Indication: BLOOD PRESSURE INCREASED
     Dosage: 1 DF (STARTED ONE YEAR AND A HALF AGO)
     Route: 065

REACTIONS (5)
  - Feeling abnormal [Unknown]
  - Hypertension [Unknown]
  - Speech disorder [Unknown]
  - Gait disturbance [Unknown]
  - Cerebrovascular accident [Unknown]
